FAERS Safety Report 7745859-5 (Version None)
Quarter: 2011Q3

REPORT INFORMATION
  Report Type: 
  Country: None (occurrence: None)
  Receive Date: 20110913
  Receipt Date: 20110810
  Transmission Date: 20111222
  Serious: Yes (Other)
  Sender: FDA-Public Use
  Company Number: US-SANOFI-AVENTIS-2011SA042072

PATIENT
  Age: 26 Year
  Sex: Female
  Weight: 65.45 kg

DRUGS (2)
  1. PRENATAL VITAMINS [Concomitant]
  2. LOVENOX [Suspect]
     Route: 058
     Dates: start: 20110610, end: 20110705

REACTIONS (3)
  - MATERNAL EXPOSURE DURING PREGNANCY [None]
  - INJECTION SITE PAIN [None]
  - INTRA-UTERINE DEATH [None]
